FAERS Safety Report 9672020 (Version 1)
Quarter: 2013Q4

REPORT INFORMATION
  Report Type: Spontaneous
  Country: GB (occurrence: None)
  Receive Date: 20131104
  Receipt Date: 20131104
  Transmission Date: 20140711
  Serious: Yes (Hospitalization, Other)
  Sender: FDA-Public Use
  Company Number: AUR-APL-2013-08904

PATIENT
  Sex: Female

DRUGS (3)
  1. RIBAVIRIN (RIBAVIRIN) [Suspect]
     Indication: HEPATITIS C
     Dosage: 800 MG (400 MG, 2 IN 1 DA), ORAL
     Route: 048
     Dates: start: 20121028, end: 20130116
  2. INCIVO (TELAPREVIR) [Suspect]
     Dosage: 2250 MG (750 MG, 2 IN 1 D), ORAL
     Route: 048
     Dates: start: 20121125, end: 20130116
  3. PEGYLATED INTERFERON ALFA-2A [Suspect]
     Indication: HEPATITIS C
     Dosage: 25.7143 MCG (180 MCG, 1 IN 1 WK), SUBCUTANEOUS
     Route: 058
     Dates: start: 20121028, end: 20130116

REACTIONS (5)
  - Drug reaction with eosinophilia and systemic symptoms [None]
  - Rash [None]
  - Eczema [None]
  - Swelling face [None]
  - Malaise [None]
